FAERS Safety Report 19172993 (Version 1)
Quarter: 2021Q2

REPORT INFORMATION
  Report Type: Spontaneous
  Country: US (occurrence: US)
  Receive Date: 20210422
  Receipt Date: 20210422
  Transmission Date: 20210717
  Serious: Yes (Other)
  Sender: FDA-Public Use
  Company Number: None

PATIENT
  Age: 65 Year
  Sex: Female
  Weight: 99.9 kg

DRUGS (29)
  1. FLUTICASONE. [Concomitant]
     Active Substance: FLUTICASONE
  2. MORPHINE [Concomitant]
     Active Substance: MORPHINE
  3. SPIRONOLACTONE. [Concomitant]
     Active Substance: SPIRONOLACTONE
  4. BIOTIN [Concomitant]
     Active Substance: BIOTIN
  5. JARDIANCE [Concomitant]
     Active Substance: EMPAGLIFLOZIN
  6. METOPROLOL. [Concomitant]
     Active Substance: METOPROLOL
  7. TIZANIDINE. [Concomitant]
     Active Substance: TIZANIDINE
  8. LOW DOSE ASPIRIN [Concomitant]
     Active Substance: ASPIRIN
  9. LAXATIVE [Concomitant]
     Active Substance: UNSPECIFIED INGREDIENT
  10. PREGABALIN. [Suspect]
     Active Substance: PREGABALIN
     Indication: NEURALGIA
     Dosage: ?          QUANTITY:1 CAPSULE(S);?
     Route: 048
     Dates: start: 20210421
  11. OZEMPIC [Concomitant]
     Active Substance: SEMAGLUTIDE
  12. ALBUTEROL SULFATE. [Concomitant]
     Active Substance: ALBUTEROL SULFATE
  13. GAS RELIEF [Concomitant]
     Active Substance: DIMETHICONE
  14. AMOXICILLIN. [Concomitant]
     Active Substance: AMOXICILLIN
  15. LORATADINE. [Concomitant]
     Active Substance: LORATADINE
  16. ROPINIROLE. [Concomitant]
     Active Substance: ROPINIROLE
  17. STOOL SOFTENER (DOCUSATE) [Concomitant]
     Active Substance: DOCUSATE
  18. IRON SUPPLEMENT [Concomitant]
     Active Substance: IRON
  19. NSAIDS [Concomitant]
     Active Substance: UNSPECIFIED INGREDIENT
  20. TRAZODONE [Concomitant]
     Active Substance: TRAZODONE HYDROCHLORIDE
  21. MULTIVITAMINS [Concomitant]
     Active Substance: VITAMINS
  22. GABAPENTIN. [Concomitant]
     Active Substance: GABAPENTIN
  23. OMEPRAZOLE. [Concomitant]
     Active Substance: OMEPRAZOLE
  24. SIMVASTATIN. [Concomitant]
     Active Substance: SIMVASTATIN
  25. CYMBALTA [Concomitant]
     Active Substance: DULOXETINE HYDROCHLORIDE
  26. PREGABALIN. [Concomitant]
     Active Substance: PREGABALIN
  27. TRAMADOL. [Concomitant]
     Active Substance: TRAMADOL
  28. ENALAPRIL [Concomitant]
     Active Substance: ENALAPRIL
  29. METFORMIN [Concomitant]
     Active Substance: METFORMIN HYDROCHLORIDE

REACTIONS (1)
  - Dizziness [None]

NARRATIVE: CASE EVENT DATE: 20210421
